FAERS Safety Report 8098776 (Version 7)
Quarter: 2013Q3

REPORT INFORMATION
  Report Type: Spontaneous
  Country: US (occurrence: US)
  Receive Date: 20110819
  Receipt Date: 20130823
  Transmission Date: 20140515
  Serious: Yes (Hospitalization, Other)
  Sender: FDA-Public Use
  Company Number: US-ROCHE-776491

PATIENT
  Age: 16 Year
  Sex: Male
  Weight: 88.5 kg

DRUGS (3)
  1. ACCUTANE [Suspect]
     Indication: ACNE
     Route: 048
     Dates: start: 19980430, end: 199810
  2. ACCUTANE [Suspect]
     Route: 048
     Dates: start: 19990722, end: 199912
  3. KEFLEX [Concomitant]

REACTIONS (6)
  - Colitis ulcerative [Unknown]
  - Large intestine polyp [Unknown]
  - Back pain [Unknown]
  - Lip dry [Unknown]
  - Epistaxis [Unknown]
  - Blood cholesterol increased [Unknown]
